FAERS Safety Report 23749549 (Version 4)
Quarter: 2024Q2

REPORT INFORMATION
  Report Type: Spontaneous
  Country: JP (occurrence: JP)
  Receive Date: 20240416
  Receipt Date: 20240515
  Transmission Date: 20240715
  Serious: Yes (Hospitalization, Other)
  Sender: FDA-Public Use
  Company Number: JP-ORGANON-O2404JPN001636

PATIENT
  Age: 43 Year
  Sex: Female
  Weight: 65.1 kg

DRUGS (12)
  1. DESLORATADINE [Suspect]
     Active Substance: DESLORATADINE
     Indication: Rhinitis allergic
     Dosage: 5 MILLIGRAM, QD
     Route: 048
     Dates: start: 20240323, end: 20240329
  2. DESLORATADINE [Suspect]
     Active Substance: DESLORATADINE
     Indication: Sinusitis
  3. LASCUFLOXACIN HYDROCHLORIDE [Suspect]
     Active Substance: LASCUFLOXACIN HYDROCHLORIDE
     Indication: Rhinitis allergic
     Dosage: 75 MILLIGRAM, QD
     Route: 048
     Dates: start: 20240323, end: 20240329
  4. LASCUFLOXACIN HYDROCHLORIDE [Suspect]
     Active Substance: LASCUFLOXACIN HYDROCHLORIDE
     Indication: Sinusitis
  5. CLARITHROMYCIN [Suspect]
     Active Substance: CLARITHROMYCIN
     Indication: Rhinitis allergic
     Dosage: 200 MILLIGRAM, BID
     Route: 048
     Dates: start: 20240311, end: 20240317
  6. CLARITHROMYCIN [Suspect]
     Active Substance: CLARITHROMYCIN
     Indication: Sinusitis
  7. CARBOCYSTEINE [Concomitant]
     Active Substance: CARBOCYSTEINE
     Indication: Rhinitis allergic
     Dosage: 500 MILLIGRAM, TID
     Route: 048
     Dates: start: 20240311, end: 20240329
  8. CARBOCYSTEINE [Concomitant]
     Active Substance: CARBOCYSTEINE
     Indication: Sinusitis
  9. AMLODIPINE BESYLATE [Concomitant]
     Active Substance: AMLODIPINE BESYLATE
     Indication: Hypertension
     Dosage: 2.5 MILLIGRAM
     Route: 048
     Dates: start: 20240307, end: 20240318
  10. AMLODIPINE BESYLATE [Concomitant]
     Active Substance: AMLODIPINE BESYLATE
     Dosage: 5 MILLIGRAM
     Route: 048
     Dates: start: 20240319, end: 20240409
  11. AMLODIPINE BESYLATE [Concomitant]
     Active Substance: AMLODIPINE BESYLATE
     Dosage: UNK (REDUCE)
     Route: 048
     Dates: start: 20240410
  12. IRBESARTAN [Concomitant]
     Active Substance: IRBESARTAN
     Indication: Hypertension
     Dosage: 100 MILLIGRAM
     Route: 065
     Dates: start: 20240307

REACTIONS (3)
  - Acute kidney injury [Unknown]
  - Pain in jaw [Unknown]
  - Trismus [Unknown]

NARRATIVE: CASE EVENT DATE: 20240329
